FAERS Safety Report 24090353 (Version 1)
Quarter: 2024Q3

REPORT INFORMATION
  Report Type: Spontaneous
  Country: JP (occurrence: JP)
  Receive Date: 20240715
  Receipt Date: 20240715
  Transmission Date: 20241017
  Serious: No
  Sender: PIERRE FABRE MEDICAMENT
  Company Number: JP-PFM-2021-07449

PATIENT
  Age: 18 Month
  Sex: Male

DRUGS (5)
  1. PROPRANOLOL HYDROCHLORIDE [Suspect]
     Active Substance: PROPRANOLOL HYDROCHLORIDE
     Indication: Infantile haemangioma
     Dosage: 1 DAILY DOSES
     Route: 048
     Dates: start: 202006, end: 202105
  2. PROPRANOLOL HYDROCHLORIDE [Suspect]
     Active Substance: PROPRANOLOL HYDROCHLORIDE
     Dosage: 1.0 MG (0.5MG/12HRS)
     Route: 048
     Dates: start: 20210618, end: 20210619
  3. PROPRANOLOL HYDROCHLORIDE [Suspect]
     Active Substance: PROPRANOLOL HYDROCHLORIDE
     Dosage: 2.0 MG (1.0MG/ 12 HOURS)
     Route: 048
     Dates: start: 20210620, end: 20210621
  4. PROPRANOLOL HYDROCHLORIDE [Suspect]
     Active Substance: PROPRANOLOL HYDROCHLORIDE
     Dosage: 3.0 MG (1.5MG/12 HOURS)
     Route: 048
     Dates: start: 20210622, end: 202107
  5. PROPRANOLOL HYDROCHLORIDE [Suspect]
     Active Substance: PROPRANOLOL HYDROCHLORIDE
     Dosage: 3.0 MG, (1.5 MG/12 HOURS)
     Route: 048
     Dates: start: 20210706

REACTIONS (2)
  - Upper respiratory tract inflammation [Recovered/Resolved]
  - Disease recurrence [Unknown]

NARRATIVE: CASE EVENT DATE: 20210618
